FAERS Safety Report 21281749 (Version 1)
Quarter: 2022Q3

REPORT INFORMATION
  Report Type: Report from Study
  Country: BE (occurrence: BE)
  Receive Date: 20220901
  Receipt Date: 20220901
  Transmission Date: 20221027
  Serious: Yes (Death, Hospitalization)
  Sender: FDA-Public Use
  Company Number: BE-ABBVIE-22K-013-4523412-00

PATIENT
  Sex: Female
  Weight: 54 kg

DRUGS (12)
  1. CARBIDOPA\LEVODOPA [Suspect]
     Active Substance: CARBIDOPA\LEVODOPA
     Indication: Parkinson^s disease
     Route: 050
     Dates: start: 20150323
  2. CARBIDOPA\LEVODOPA [Suspect]
     Active Substance: CARBIDOPA\LEVODOPA
     Dosage: MD 5.0 ML; CD 5.1 ML/HR DURING 24 HOURS; ED 5.0 ML; CND 4.3 ML/HR
     Route: 050
     Dates: start: 20190705, end: 20191129
  3. CARBIDOPA\LEVODOPA [Suspect]
     Active Substance: CARBIDOPA\LEVODOPA
     Dosage: MD 5.1 ML; CD 5.2 ML/HR DURING 24 HOURS; ED 5.2 ML; CND 4.3 ML/HR
     Route: 050
     Dates: start: 20191129
  4. ALDACTAZINE [Concomitant]
     Active Substance: ALTHIAZIDE\SPIRONOLACTONE
     Indication: Product used for unknown indication
  5. AZILECT [Concomitant]
     Active Substance: RASAGILINE MESYLATE
     Indication: Product used for unknown indication
     Dosage: AT 8.00 HOUR
  6. AZILECT [Concomitant]
     Active Substance: RASAGILINE MESYLATE
     Dosage: AT 8.00 HOUR
  7. CITALOPRAM [Concomitant]
     Active Substance: CITALOPRAM HYDROBROMIDE
     Indication: Product used for unknown indication
     Dosage: AT 8.00 HOUR
  8. PANTOMED [Concomitant]
     Indication: Product used for unknown indication
     Dosage: BEFORE BREAKFAST AND DINNER
  9. SEDINAL [Concomitant]
     Indication: Product used for unknown indication
  10. STALEVO [Concomitant]
     Active Substance: CARBIDOPA\ENTACAPONE\LEVODOPA
     Indication: Product used for unknown indication
     Dosage: AT 10.30-14.00-17.30-22.00 HOUR
  11. STALEVO [Concomitant]
     Active Substance: CARBIDOPA\ENTACAPONE\LEVODOPA
     Dosage: AT 7.00 HOUR
  12. ZOCOR [Concomitant]
     Active Substance: SIMVASTATIN
     Indication: Product used for unknown indication
     Dosage: EVERY TWO DAYS

REACTIONS (1)
  - Unevaluable event [Fatal]
